FAERS Safety Report 12009507 (Version 1)
Quarter: 2016Q1

REPORT INFORMATION
  Report Type: Spontaneous
  Country: None (occurrence: FR)
  Receive Date: 20160205
  Receipt Date: 20160205
  Transmission Date: 20160526
  Serious: Yes (Other)
  Sender: FDA-Public Use
  Company Number: FR-MERCK KGAA-1047366

PATIENT

DRUGS (1)
  1. NOVOTHYROX [Suspect]
     Active Substance: LEVOTHYROXINE SODIUM

REACTIONS (9)
  - Glaucoma [None]
  - Fall [None]
  - Blood pressure increased [None]
  - Fatigue [None]
  - Lactose intolerance [None]
  - Balance disorder [None]
  - Drug intolerance [None]
  - Irritable bowel syndrome [None]
  - Alopecia [None]
